FAERS Safety Report 7711916-2 (Version None)
Quarter: 2011Q3

REPORT INFORMATION
  Report Type: 
  Country: None (occurrence: None)
  Receive Date: 20110826
  Receipt Date: 20110823
  Transmission Date: 20111222
  Serious: Yes (Other)
  Sender: FDA-Public Use
  Company Number: US-BRISTOL-MYERS SQUIBB COMPANY-15993835

PATIENT
  Age: 84 Year
  Sex: Female
  Weight: 84 kg

DRUGS (5)
  1. METFORMIN HCL [Suspect]
     Indication: DIABETES MELLITUS
     Dates: start: 20070101, end: 20110401
  2. GLIPIZIDE [Suspect]
     Indication: DIABETES MELLITUS
     Dates: start: 20070101
  3. COUMADIN [Suspect]
     Indication: ATRIAL FIBRILLATION
     Dosage: AT BEDTIME
     Dates: start: 20090101
  4. ATENOLOL [Concomitant]
  5. ZOCOR [Concomitant]

REACTIONS (5)
  - DIARRHOEA [None]
  - HUMERUS FRACTURE [None]
  - FALL [None]
  - ABDOMINAL PAIN UPPER [None]
  - DYSPEPSIA [None]
